FAERS Safety Report 9322745 (Version 2)
Quarter: 2013Q3

REPORT INFORMATION
  Report Type: Spontaneous
  Country: US (occurrence: US)
  Receive Date: 20130601
  Receipt Date: 20130906
  Transmission Date: 20140515
  Serious: Yes (Disabling)
  Sender: FDA-Public Use
  Company Number: US-ASTRAZENECA-2013SE38713

PATIENT
  Age: 21080 Day
  Sex: Female

DRUGS (11)
  1. NEXIUM [Suspect]
     Indication: GASTROOESOPHAGEAL REFLUX DISEASE
     Dosage: TWO TIMES A DAY
     Route: 048
  2. NEXIUM [Suspect]
     Indication: ANTACID THERAPY
     Dosage: TWO TIMES A DAY
     Route: 048
  3. NEXIUM [Suspect]
     Indication: GASTROOESOPHAGEAL REFLUX DISEASE
     Route: 048
     Dates: start: 20090210
  4. NEXIUM [Suspect]
     Indication: ANTACID THERAPY
     Route: 048
     Dates: start: 20090210
  5. FOSAMAX [Suspect]
     Route: 065
  6. CETRIZINE [Concomitant]
     Route: 065
     Dates: start: 20090105
  7. LEVOTHYROXIN [Concomitant]
     Route: 065
     Dates: start: 20090105
  8. TRAMADOL HCL [Concomitant]
     Route: 065
     Dates: start: 20090122
  9. RANITIDINE [Concomitant]
     Route: 065
     Dates: start: 20090514
  10. PREDNISONE [Concomitant]
     Route: 065
     Dates: start: 20090617
  11. FOLIC ACID [Concomitant]
     Route: 065
     Dates: start: 20090617

REACTIONS (16)
  - Back disorder [Unknown]
  - Osteoporosis [Unknown]
  - Wrist fracture [Unknown]
  - Systemic lupus erythematosus [Unknown]
  - Radius fracture [Unknown]
  - Bone disorder [Unknown]
  - Fall [Unknown]
  - Ankle fracture [Unknown]
  - Arthritis [Unknown]
  - Calcium deficiency [Unknown]
  - Intervertebral disc degeneration [Unknown]
  - Rheumatoid arthritis [Unknown]
  - Vitamin D deficiency [Unknown]
  - Depression [Unknown]
  - Abdominal discomfort [Unknown]
  - Vomiting [Unknown]
